FAERS Safety Report 16429111 (Version 2)
Quarter: 2019Q3

REPORT INFORMATION
  Report Type: Report from Study
  Country: None (occurrence: BR)
  Receive Date: 20190614
  Receipt Date: 20190911
  Transmission Date: 20191004
  Serious: Yes (Other)
  Sender: FDA-Public Use
  Company Number: BR-ABBVIE-19K-020-2813387-00

PATIENT
  Age: 42 Year
  Sex: Female
  Weight: 100 kg

DRUGS (3)
  1. HUMIRA [Suspect]
     Active Substance: ADALIMUMAB
     Indication: CROHN^S DISEASE
     Route: 058
     Dates: start: 20180504, end: 20190422
  2. HUMIRA [Suspect]
     Active Substance: ADALIMUMAB
     Indication: UVEITIS
  3. AZATHIOPRINE. [Concomitant]
     Active Substance: AZATHIOPRINE
     Indication: PRODUCT USED FOR UNKNOWN INDICATION

REACTIONS (16)
  - Intestinal obstruction [Not Recovered/Not Resolved]
  - Uveitis [Not Recovered/Not Resolved]
  - Arthralgia [Unknown]
  - Ovarian cyst [Recovered/Resolved]
  - Intestinal stenosis [Unknown]
  - Rheumatoid arthritis [Unknown]
  - Urinary incontinence [Unknown]
  - Uterine leiomyoma [Recovered/Resolved]
  - Flatulence [Unknown]
  - Muscle spasms [Unknown]
  - Uterine disorder [Unknown]
  - Fallopian tube disorder [Unknown]
  - Swelling [Unknown]
  - Constipation [Recovering/Resolving]
  - Uveitis [Unknown]
  - Fallopian tube disorder [Recovered/Resolved]

NARRATIVE: CASE EVENT DATE: 2019
